FAERS Safety Report 10915698 (Version 1)
Quarter: 2015Q1

REPORT INFORMATION
  Report Type: Spontaneous
  Country: FR (occurrence: FR)
  Receive Date: 20150316
  Receipt Date: 20150316
  Transmission Date: 20150721
  Serious: Yes (Other)
  Sender: FDA-Public Use
  Company Number: FR-BAYER-2015-013082

PATIENT
  Age: 26 Year
  Sex: Female

DRUGS (2)
  1. LEVONORGESTREL W/ETHINYLESTRADIOL [Concomitant]
     Active Substance: ETHINYL ESTRADIOL\LEVONORGESTREL
  2. BILTRICIDE [Suspect]
     Active Substance: PRAZIQUANTEL
     Indication: CESTODE INFECTION
     Dosage: 2 AND A HALF TABLET, ONCE
     Route: 048
     Dates: start: 20150124, end: 20150124

REACTIONS (6)
  - Myalgia [Recovered/Resolved]
  - Hyperhidrosis [Recovered/Resolved]
  - Abdominal pain [Recovered/Resolved]
  - Vomiting [Recovered/Resolved]
  - Anorectal discomfort [Recovered/Resolved]
  - Product use issue [None]

NARRATIVE: CASE EVENT DATE: 20150124
